FAERS Safety Report 8291573-X (Version None)
Quarter: 2012Q2

REPORT INFORMATION
  Report Type: 
  Country: None (occurrence: None)
  Receive Date: 20120417
  Receipt Date: 20120405
  Transmission Date: 20120825
  Serious: Yes (Hospitalization, Other)
  Sender: FDA-Public Use
  Company Number: US-ELI_LILLY_AND_COMPANY-US201204002030

PATIENT
  Sex: Female

DRUGS (2)
  1. HUMULIN 70/30 [Suspect]
     Indication: DIABETES MELLITUS
     Dosage: 45 U, BID
  2. HUMULIN 70/30 [Suspect]
     Dosage: 45 U, BID

REACTIONS (10)
  - MALAISE [None]
  - PAIN [None]
  - FEELING ABNORMAL [None]
  - ESCHERICHIA INFECTION [None]
  - APPETITE DISORDER [None]
  - STENT PLACEMENT [None]
  - NERVOUSNESS [None]
  - FATIGUE [None]
  - MUSCLE TIGHTNESS [None]
  - CARDIAC OPERATION [None]
